FAERS Safety Report 20079211 (Version 1)
Quarter: 2021Q4

REPORT INFORMATION
  Report Type: Spontaneous
  Country: IT (occurrence: IT)
  Receive Date: 20211117
  Receipt Date: 20211117
  Transmission Date: 20220303
  Serious: Yes (Death, Hospitalization)
  Sender: FDA-Public Use
  Company Number: IT-TEVA-2021-IT-1977529

PATIENT
  Age: 32 Year
  Sex: Female

DRUGS (3)
  1. MYCOPHENOLATE MOFETIL [Suspect]
     Active Substance: MYCOPHENOLATE MOFETIL
     Indication: Urticarial vasculitis
     Route: 065
  2. AZATHIOPRINE [Suspect]
     Active Substance: AZATHIOPRINE
     Indication: Urticarial vasculitis
     Route: 065
  3. PREDNISONE [Suspect]
     Active Substance: PREDNISONE
     Indication: Prophylaxis
     Dosage: 12.5 MILLIGRAM DAILY; MAINTENANCE DOSE
     Route: 065

REACTIONS (5)
  - Endocarditis [Fatal]
  - Listeriosis [Fatal]
  - Coronary artery embolism [Fatal]
  - Cerebral artery embolism [Unknown]
  - Cerebral haemorrhage [Unknown]
